FAERS Safety Report 5523961-6 (Version None)
Quarter: 2007Q4

REPORT INFORMATION
  Report Type: 
  Country: None (occurrence: None)
  Receive Date: 20071121
  Receipt Date: 20071115
  Transmission Date: 20080405
  Serious: Yes (Hospitalization)
  Sender: FDA-Public Use
  Company Number: SE-ABBOTT-07P-150-0424845-00

PATIENT
  Age: 87 Year
  Sex: Female

DRUGS (19)
  1. ZEMPLAR [Suspect]
     Indication: HYPERPARATHYROIDISM SECONDARY
     Dosage: 5 MCG/ML
     Route: 042
     Dates: start: 20071015
  2. HYDROXYZINE [Concomitant]
     Indication: PRURITUS
     Route: 048
  3. GLYCERYL TRINITRATE [Concomitant]
     Indication: DRUG USE FOR UNKNOWN INDICATION
     Route: 060
  4. ESTRADIOL [Concomitant]
     Indication: DRUG USE FOR UNKNOWN INDICATION
     Route: 067
  5. EMLA [Concomitant]
     Indication: DRUG USE FOR UNKNOWN INDICATION
     Route: 061
  6. PEVARYL CREAM 1% [Concomitant]
     Indication: ANTIFUNGAL PROPHYLAXIS
     Route: 061
  7. PARACETAMOL [Concomitant]
     Indication: DRUG USE FOR UNKNOWN INDICATION
     Route: 048
  8. PARENTROVITE [Concomitant]
     Indication: DRUG USE FOR UNKNOWN INDICATION
     Route: 048
  9. PROPIOMAZINE MALEATE [Concomitant]
     Indication: DRUG USE FOR UNKNOWN INDICATION
     Route: 048
  10. ACETYLSALICYLIC ACID SRT [Concomitant]
     Indication: DRUG USE FOR UNKNOWN INDICATION
     Route: 048
  11. ARANESP SOL F INJ [Concomitant]
     Indication: DRUG USE FOR UNKNOWN INDICATION
     Route: 042
  12. ARANESP SOL F INJ [Concomitant]
     Dosage: 30 MCG, 40 MCG
     Route: 042
  13. AMOXICILLIN TRIHYDRATE [Concomitant]
     Indication: DRUG USE FOR UNKNOWN INDICATION
     Route: 048
  14. FUNDAN SCHAMPOO [Concomitant]
     Indication: DRUG USE FOR UNKNOWN INDICATION
     Dosage: 1 DOSE WHEN NEEDED + 2/WEEK FOR AT MINIMUM 2 WEEKS, BODY + HAIR
     Route: 061
  15. VENOFER INJ CONC F INFUSION [Concomitant]
     Indication: DRUG USE FOR UNKNOWN INDICATION
     Dosage: 20 MG/ML; 2.5 ML
  16. XERODENT [Concomitant]
     Indication: DRUG USE FOR UNKNOWN INDICATION
     Dosage: 0.25 MG-1.5G/0.25 MG; 1-6 TABS/DAY
     Route: 002
  17. LEVOMENTOLUM + CAMPHORA RACEMICA CREAM [Concomitant]
     Indication: PRURITUS
     Dosage: 1G (L)/2G (C); 1 DOSE
     Route: 061
  18. DENTAN MOUTH WASH 0.2% [Concomitant]
     Indication: DRUG USE FOR UNKNOWN INDICATION
     Dosage: 10 ML
     Route: 002
  19. DEXTROPROPOXYPHENE NAPSILATE [Concomitant]
     Indication: DRUG USE FOR UNKNOWN INDICATION
     Route: 048

REACTIONS (7)
  - CARDIAC MURMUR [None]
  - FALL [None]
  - FEMUR FRACTURE [None]
  - HAEMATEMESIS [None]
  - HEAD INJURY [None]
  - RALES [None]
  - RHONCHI [None]
